FAERS Safety Report 5209647-6 (Version None)
Quarter: 2007Q1

REPORT INFORMATION
  Report Type: 
  Country: None (occurrence: None)
  Receive Date: 20070116
  Receipt Date: 20070104
  Transmission Date: 20070707
  Serious: Yes (Death, Hospitalization)
  Sender: FDA-Public Use
  Company Number: GR-PFIZER INC-2006149067

PATIENT
  Age: 82 Year
  Sex: Male
  Weight: 80 kg

DRUGS (7)
  1. NEURONTIN [Suspect]
     Indication: PROPHYLAXIS
     Route: 048
     Dates: start: 20060926, end: 20060929
  2. VELCADE [Suspect]
     Indication: MULTIPLE MYELOMA
     Route: 042
     Dates: start: 20060925, end: 20060928
  3. DEXAMETHASONE SODIUM PHOSPHATE [Suspect]
     Indication: PROPHYLAXIS
     Dates: start: 20060925, end: 20060926
  4. PERINDOPRIL ERBUMINE [Concomitant]
     Route: 048
  5. LASIX [Concomitant]
     Route: 048
  6. ALLOPURINOL SODIUM [Concomitant]
     Route: 048
  7. PANCORAN [Concomitant]
     Route: 061

REACTIONS (3)
  - MUSCLE SPASMS [None]
  - MUSCULAR WEAKNESS [None]
  - RENAL FAILURE [None]
